FAERS Safety Report 4751984-3 (Version None)
Quarter: 2005Q3

REPORT INFORMATION
  Report Type: 
  Country: None (occurrence: None)
  Receive Date: 20050822
  Receipt Date: 20050526
  Transmission Date: 20060218
  Serious: No
  Sender: FDA-Public Use
  Company Number: PHEH2005US05984

PATIENT
  Age: 69 Year
  Sex: Female

DRUGS (1)
  1. ZELNORM [Suspect]
     Dosage: 6 MG, TID, ORAL
     Route: 048

REACTIONS (3)
  - FATIGUE [None]
  - MICTURITION DISORDER [None]
  - RENAL DISORDER [None]
